FAERS Safety Report 9508909 (Version 1)
Quarter: 2013Q1

REPORT INFORMATION
  Report Type: Spontaneous
  Country: US (occurrence: None)
  Receive Date: 20130305
  Receipt Date: 20130305
  Transmission Date: 20140127
  Serious: Yes (Hospitalization, Other)
  Sender: FDA-Public Use
  Company Number: 163-21880-12022980

PATIENT
  Age: 66 Year
  Sex: Male

DRUGS (9)
  1. REVLIMID (LENALIDOMIDE) (25 MILLIGRAM, CAPSULES) [Suspect]
     Indication: PLASMA CELL MYELOMA
     Dosage: X21D/28D
     Route: 048
     Dates: start: 201003, end: 201202
  2. DEXAMETHASONE (DEXAMETHASONE) [Concomitant]
  3. FLUID (BARIUM SULFATE) [Concomitant]
  4. ANTIBIOTICS (ANTIBIOTICS) [Concomitant]
  5. HYDROCODONE/ APAP (VICODIN) [Concomitant]
  6. BROMOCRIPTINE (BROMOCRIPTINE) [Concomitant]
  7. LEVOTHYROXINE (LEVOTHYROXINE) [Concomitant]
  8. VIAGRA (SILDENAFIL CITRATE) [Concomitant]
  9. TESTOSTERONE PATCH (TESTOSTERONE) [Concomitant]

REACTIONS (5)
  - Pneumonia [None]
  - Sepsis [None]
  - Neutropenia [None]
  - Haemoglobin decreased [None]
  - Plasma cell myeloma [None]
